FAERS Safety Report 23484189 (Version 1)
Quarter: 2024Q1

REPORT INFORMATION
  Report Type: Spontaneous
  Country: CH (occurrence: CH)
  Receive Date: 20240206
  Receipt Date: 20240206
  Transmission Date: 20240410
  Serious: Yes (Life-Threatening, Other)
  Sender: FDA-Public Use
  Company Number: CH-ABBVIE-5571756

PATIENT
  Age: 65 Year
  Sex: Male
  Weight: 86 kg

DRUGS (14)
  1. RINVOQ [Suspect]
     Active Substance: UPADACITINIB
     Indication: Dermatitis atopic
     Route: 048
     Dates: start: 20221026, end: 20231228
  2. PEMBROLIZUMAB [Concomitant]
     Active Substance: PEMBROLIZUMAB
     Indication: Lung neoplasm malignant
  3. PRURI-MED [Concomitant]
     Indication: Product used for unknown indication
  4. NUTRAPLUS [Concomitant]
     Indication: Product used for unknown indication
  5. CO LISINOPRIL [Concomitant]
     Indication: Product used for unknown indication
  6. PRURI MED LIPOLOTION [Concomitant]
     Indication: Product used for unknown indication
     Dosage: AS NECESSARY
  7. MOMETASONE FUROATE [Concomitant]
     Active Substance: MOMETASONE FUROATE
     Indication: Product used for unknown indication
     Dosage: AS NECESSARY
  8. PANTOPRAZOLE SODIUM [Concomitant]
     Active Substance: PANTOPRAZOLE SODIUM
     Indication: Product used for unknown indication
     Dosage: 20 MILLIGRAM
  9. Novalgin [Concomitant]
     Indication: Product used for unknown indication
     Dosage: 4 FOR 1 TIME PER DAY
  10. EXCIPIAL U LIPOLOTIO [Concomitant]
     Indication: Product used for unknown indication
     Dosage: ONE TO TWO TIMES PER DAY
  11. IBUPROFEN [Concomitant]
     Active Substance: IBUPROFEN
     Indication: Product used for unknown indication
  12. FELODIPIN MEPHA [Concomitant]
     Indication: Product used for unknown indication
     Dosage: 10 MILLIGRAM
  13. ROSUVASTATIN CALCIUM [Concomitant]
     Active Substance: ROSUVASTATIN CALCIUM
     Indication: Product used for unknown indication
     Dosage: 10 MILLIGRAM
  14. EZETIMIBE [Concomitant]
     Active Substance: EZETIMIBE
     Indication: Product used for unknown indication
     Dosage: 10 MILLIGRAM

REACTIONS (1)
  - Lung adenocarcinoma [Not Recovered/Not Resolved]

NARRATIVE: CASE EVENT DATE: 20231208
